FAERS Safety Report 12082843 (Version 1)
Quarter: 2016Q1

REPORT INFORMATION
  Report Type: Spontaneous
  Country: DE (occurrence: DE)
  Receive Date: 20160217
  Receipt Date: 20160217
  Transmission Date: 20160526
  Serious: Yes (Hospitalization)
  Sender: FDA-Public Use
  Company Number: PHHY2016DE019546

PATIENT
  Sex: Male

DRUGS (7)
  1. TASIGNA [Suspect]
     Active Substance: NILOTINIB
     Dosage: 500 MG, QD
     Route: 065
     Dates: start: 201512
  2. TASIGNA [Suspect]
     Active Substance: NILOTINIB
     Dosage: 400 MG, QD
     Route: 065
     Dates: start: 2014, end: 201512
  3. TASIGNA [Suspect]
     Active Substance: NILOTINIB
     Dosage: 600 MG, QD
     Route: 065
     Dates: start: 201306, end: 20130709
  4. TASIGNA [Suspect]
     Active Substance: NILOTINIB
     Indication: PRODUCT USED FOR UNKNOWN INDICATION
     Dosage: 600 MG, QD
     Route: 065
     Dates: start: 201212, end: 20130612
  5. TASIGNA [Suspect]
     Active Substance: NILOTINIB
     Dosage: 600 MG, QD
     Route: 065
     Dates: start: 201307, end: 20130806
  6. TASIGNA [Suspect]
     Active Substance: NILOTINIB
     Dosage: 400 MG, QD
     Route: 065
     Dates: start: 201309, end: 201403
  7. TASIGNA [Suspect]
     Active Substance: NILOTINIB
     Dosage: 500 MG, QD
     Route: 065
     Dates: start: 201403, end: 201406

REACTIONS (3)
  - Lipase increased [Unknown]
  - Ileus paralytic [Recovered/Resolved]
  - Amylase increased [Unknown]

NARRATIVE: CASE EVENT DATE: 20130613
